FAERS Safety Report 25560018 (Version 1)
Quarter: 2025Q3

REPORT INFORMATION
  Report Type: Spontaneous
  Country: US (occurrence: US)
  Receive Date: 20250715
  Receipt Date: 20250715
  Transmission Date: 20251020
  Serious: No
  Sender: NOVO NORDISK
  Company Number: US-NOVOPROD-1386970

PATIENT
  Sex: Female
  Weight: 300 kg

DRUGS (2)
  1. OZEMPIC [Suspect]
     Active Substance: SEMAGLUTIDE
     Indication: Weight control
  2. OZEMPIC [Suspect]
     Active Substance: SEMAGLUTIDE
     Indication: Diabetes mellitus
     Dates: start: 202409

REACTIONS (5)
  - Headache [Unknown]
  - Mobility decreased [Unknown]
  - Fall [Unknown]
  - Sinusitis [Unknown]
  - Rhinalgia [Unknown]
